FAERS Safety Report 20905558 (Version 5)
Quarter: 2023Q1

REPORT INFORMATION
  Report Type: Spontaneous
  Country: US (occurrence: US)
  Receive Date: 20220602
  Receipt Date: 20230104
  Transmission Date: 20230418
  Serious: No
  Sender: FDA-Public Use
  Company Number: US-PFIZER INC-202200785245

PATIENT
  Age: 64 Year
  Sex: Male

DRUGS (1)
  1. XELJANZ XR [Suspect]
     Active Substance: TOFACITINIB CITRATE
     Indication: Rheumatoid arthritis
     Dosage: 11 MG, ONCE DAILY
     Route: 048
     Dates: start: 202110, end: 20221216

REACTIONS (13)
  - Therapeutic product effect incomplete [Unknown]
  - Drug ineffective [Unknown]
  - Pain in extremity [Not Recovered/Not Resolved]
  - Back pain [Unknown]
  - Dyspnoea [Recovered/Resolved]
  - Discomfort [Recovered/Resolved]
  - Arthralgia [Unknown]
  - Muscle spasms [Unknown]
  - Insomnia [Unknown]
  - Condition aggravated [Unknown]
  - Feeling hot [Not Recovered/Not Resolved]
  - Mobility decreased [Unknown]
  - Blood glucose increased [Unknown]

NARRATIVE: CASE EVENT DATE: 20211101
